FAERS Safety Report 10176162 (Version 1)
Quarter: 2014Q2

REPORT INFORMATION
  Report Type: Spontaneous
  Country: US (occurrence: None)
  Receive Date: 20140416
  Receipt Date: 20140416
  Transmission Date: 20141212
  Serious: Yes (Hospitalization)
  Sender: FDA-Public Use
  Company Number: 163-POMAL-14020471

PATIENT
  Age: 66 Year
  Sex: Male
  Weight: 87.54 kg

DRUGS (9)
  1. POMALYST [Suspect]
     Indication: PLASMA CELL MYELOMA
     Dosage: 21 IN 21 D
     Route: 048
     Dates: start: 201307
  2. LEVOTHYROXINE (LEVOTHYROXINE) [Concomitant]
  3. LYRICA (PREGABALIN) [Concomitant]
  4. AVELOX (MOXIFLOXACIN HYDROCHLORIDE) [Concomitant]
  5. OXYCODONE (OXYCODONE) [Concomitant]
  6. DEXAMETHASONE (DEXAMETHASONE) [Concomitant]
  7. SEPTRA DS (BACTRIM) [Concomitant]
  8. ASA (ACETYLSALICYLIC ACID) [Concomitant]
  9. AZITHROMYCIN (AZITHROMYCIN) [Concomitant]

REACTIONS (1)
  - Bronchitis [None]
